FAERS Safety Report 6061430-8 (Version None)
Quarter: 2009Q1

REPORT INFORMATION
  Report Type: 
  Country: None (occurrence: None)
  Receive Date: 20090202
  Receipt Date: 20090129
  Transmission Date: 20090719
  Serious: Yes (Disabling)
  Sender: FDA-Public Use
  Company Number: US-BAYER-200814379BCC

PATIENT
  Age: 35 Year
  Sex: Male
  Weight: 107 kg

DRUGS (1)
  1. ASPIRIN [Suspect]
     Indication: BACK PAIN
     Dates: start: 19910101

REACTIONS (2)
  - BACK PAIN [None]
  - HYPOACUSIS [None]
